FAERS Safety Report 20852752 (Version 3)
Quarter: 2023Q2

REPORT INFORMATION
  Report Type: Spontaneous
  Country: FR (occurrence: FR)
  Receive Date: 20220520
  Receipt Date: 20230405
  Transmission Date: 20230722
  Serious: Yes (Hospitalization, Other)
  Sender: FDA-Public Use
  Company Number: FR-AFSSAPS-CN20220724

PATIENT
  Age: 11 Year
  Sex: Female

DRUGS (10)
  1. ACETAMINOPHEN [Suspect]
     Active Substance: ACETAMINOPHEN
     Indication: Abdominal pain
     Dosage: 500 MILLIGRAM, EVERY FOUR HOUR
     Route: 048
     Dates: start: 20220327, end: 20220403
  2. ACETAMINOPHEN [Suspect]
     Active Substance: ACETAMINOPHEN
     Dosage: 500 MILLIGRAM, EVERY FOUR HOUR
     Route: 048
     Dates: start: 20220411, end: 20220420
  3. PHLOROGLUCINOL [Suspect]
     Active Substance: PHLOROGLUCINOL
     Indication: Abdominal pain
     Dosage: 240 MILLIGRAM, ONCE A DAY
     Route: 048
     Dates: start: 20220411, end: 20220420
  4. PHLOROGLUCINOL [Suspect]
     Active Substance: PHLOROGLUCINOL
     Dosage: 240 MILLIGRAM, ONCE A DAY
     Route: 048
     Dates: start: 20220327, end: 20220403
  5. RACECADOTRIL [Suspect]
     Active Substance: RACECADOTRIL
     Indication: Diarrhoea
     Dosage: 180 MILLIGRAM, ONCE A DAY
     Route: 048
     Dates: start: 20220331
  6. AUGMENTIN [Suspect]
     Active Substance: AMOXICILLIN\CLAVULANATE POTASSIUM
     Indication: Skin infection
     Dosage: 3 GRAM, ONCE A DAY
     Route: 048
     Dates: start: 20220213
  7. SMECTA [Suspect]
     Active Substance: MONTMORILLONITE
     Indication: Diarrhoea
     Dosage: 3 GRAM, 3 TIMES A DAY
     Route: 048
     Dates: start: 20220327
  8. 1,3,5-TRIMETHOXYBENZENE [Suspect]
     Active Substance: 1,3,5-TRIMETHOXYBENZENE
     Indication: Abdominal pain
     Dosage: 240 MILLIGRAM, ONCE A DAY
     Route: 048
     Dates: start: 20220327, end: 20220403
  9. 1,3,5-TRIMETHOXYBENZENE [Suspect]
     Active Substance: 1,3,5-TRIMETHOXYBENZENE
     Dosage: 240 MILLIGRAM, ONCE A DAY
     Route: 048
     Dates: start: 20220411
  10. VOGALENE [Suspect]
     Active Substance: METOPIMAZINE
     Indication: Vomiting
     Dosage: 7.5 MILLIGRAM, TWO TIMES A DAY
     Route: 048
     Dates: start: 20220327

REACTIONS (1)
  - Drug reaction with eosinophilia and systemic symptoms [Recovering/Resolving]

NARRATIVE: CASE EVENT DATE: 20220412
